FAERS Safety Report 4713195-7 (Version None)
Quarter: 2005Q3

REPORT INFORMATION
  Report Type: 
  Country: None (occurrence: None)
  Receive Date: 20050713
  Receipt Date: 20050413
  Transmission Date: 20060218
  Serious: Yes (Hospitalization)
  Sender: FDA-Public Use
  Company Number: US-MERCK-0504USA02020

PATIENT
  Sex: Female
  Weight: 95 kg

DRUGS (13)
  1. VIOXX [Suspect]
     Indication: SYSTEMIC LUPUS ERYTHEMATOSUS
     Route: 048
     Dates: start: 19991015, end: 20000411
  2. VIOXX [Suspect]
     Route: 048
     Dates: start: 20000412, end: 20000807
  3. VIOXX [Suspect]
     Route: 048
     Dates: start: 20000808, end: 20000816
  4. VIOXX [Suspect]
     Route: 048
     Dates: start: 20000817, end: 20030615
  5. VIOXX [Suspect]
     Route: 048
     Dates: start: 20030616, end: 20040824
  6. VIOXX [Suspect]
     Route: 048
     Dates: start: 20040825, end: 20040901
  7. CHLORZOXAZONE [Concomitant]
     Route: 048
     Dates: start: 20010910, end: 20040929
  8. PARLODEL [Concomitant]
     Indication: PITUITARY TUMOUR
     Route: 048
     Dates: start: 19990331, end: 20040929
  9. SYNTHROID [Concomitant]
     Indication: HYPOTHYROIDISM
     Route: 048
     Dates: start: 19991206
  10. METHOTREXATE [Concomitant]
     Indication: SYSTEMIC LUPUS ERYTHEMATOSUS
     Route: 048
     Dates: start: 19950101, end: 20050101
  11. FOLIC ACID [Concomitant]
     Route: 048
  12. AMITRIPTYLINE HYDROCHLORIDE [Concomitant]
     Indication: PAIN
     Route: 048
     Dates: start: 19990706
  13. DARVOCET-N 100 [Concomitant]
     Indication: PAIN
     Route: 048
     Dates: start: 20010910

REACTIONS (10)
  - ASTHMA [None]
  - BLOOD CHOLESTEROL INCREASED [None]
  - CARDIAC VALVE DISEASE [None]
  - DEEP VEIN THROMBOSIS [None]
  - EYE DISORDER [None]
  - GOUT [None]
  - HYPERTENSION [None]
  - INFECTION [None]
  - MIGRAINE [None]
  - SLEEP DISORDER [None]
